FAERS Safety Report 18676430 (Version 1)
Quarter: 2020Q4

REPORT INFORMATION
  Report Type: Report from Study
  Country: US (occurrence: US)
  Receive Date: 20201229
  Receipt Date: 20201229
  Transmission Date: 20210114
  Serious: Yes (Other)
  Sender: FDA-Public Use
  Company Number: US-BRISTOL-MYERS SQUIBB COMPANY-BMS-2020-110062

PATIENT
  Sex: Male

DRUGS (1)
  1. APIXABAN [Suspect]
     Active Substance: APIXABAN
     Indication: PRODUCT USED FOR UNKNOWN INDICATION
     Route: 065

REACTIONS (5)
  - Dementia Alzheimer^s type [Unknown]
  - Dementia with Lewy bodies [Unknown]
  - Fall [Unknown]
  - Dehydration [Unknown]
  - Hip fracture [Unknown]

NARRATIVE: CASE EVENT DATE: 20201105
